FAERS Safety Report 12625378 (Version 3)
Quarter: 2016Q4

REPORT INFORMATION
  Report Type: Spontaneous
  Country: US (occurrence: US)
  Receive Date: 20160805
  Receipt Date: 20161103
  Transmission Date: 20170207
  Serious: Yes (Other)
  Sender: FDA-Public Use
  Company Number: US-TEVA-681705ACC

PATIENT
  Age: 46 Year
  Sex: Female
  Weight: 69.01 kg

DRUGS (3)
  1. PARAGARD T 380A [Suspect]
     Active Substance: COPPER
     Indication: CONTRACEPTION
     Dates: start: 20160713, end: 20160727
  2. ASPIRIN. [Concomitant]
     Active Substance: ASPIRIN
  3. PARAGARD T 380A [Suspect]
     Active Substance: COPPER
     Dates: start: 20160727

REACTIONS (3)
  - Device dislocation [Recovered/Resolved]
  - Complication associated with device [Recovered/Resolved]
  - Complication of device insertion [Unknown]

NARRATIVE: CASE EVENT DATE: 20160713
